FAERS Safety Report 9958230 (Version 1)
Quarter: 2014Q1

REPORT INFORMATION
  Report Type: Report from Study
  Country: US (occurrence: US)
  Receive Date: 20140304
  Receipt Date: 20140304
  Transmission Date: 20141002
  Serious: No
  Sender: FDA-Public Use
  Company Number: US-ABBVIE-13P-163-1091632-00

PATIENT
  Age: 21 Year
  Sex: Male

DRUGS (5)
  1. HUMIRA [Suspect]
     Indication: ANKYLOSING SPONDYLITIS
     Dates: start: 20130425
  2. INDOMETHACIN [Concomitant]
     Indication: PAIN
     Dosage: 100 MG DAILY
  3. PROZAC [Concomitant]
     Indication: DEPRESSION
     Dosage: 30 MG DAILY
  4. PROZAC [Concomitant]
     Indication: ANXIETY
  5. SULFASALAZINE [Concomitant]
     Indication: ARTHRALGIA
     Dosage: 500 MG DAILY

REACTIONS (11)
  - Fatigue [Not Recovered/Not Resolved]
  - Rhinorrhoea [Not Recovered/Not Resolved]
  - Pyrexia [Not Recovered/Not Resolved]
  - Diarrhoea [Not Recovered/Not Resolved]
  - Nausea [Not Recovered/Not Resolved]
  - Vomiting [Not Recovered/Not Resolved]
  - Abdominal pain upper [Not Recovered/Not Resolved]
  - Headache [Not Recovered/Not Resolved]
  - Insomnia [Not Recovered/Not Resolved]
  - Night sweats [Not Recovered/Not Resolved]
  - Chromaturia [Not Recovered/Not Resolved]
